FAERS Safety Report 18195967 (Version 2)
Quarter: 2020Q3

REPORT INFORMATION
  Report Type: Spontaneous
  Country: DE (occurrence: DE)
  Receive Date: 20200825
  Receipt Date: 20200904
  Transmission Date: 20201103
  Serious: Yes (Other)
  Sender: FDA-Public Use
  Company Number: DE-US-PROVELL PHARMACEUTICALS LLC-E2B_90079500

PATIENT
  Age: 81 Year
  Sex: Female

DRUGS (3)
  1. EUTHYROX [Suspect]
     Active Substance: LEVOTHYROXINE SODIUM
     Dosage: DOSE REDUCED
  2. METOPROLOL. [Concomitant]
     Active Substance: METOPROLOL
     Indication: BLOOD PRESSURE MEASUREMENT
  3. EUTHYROX [Suspect]
     Active Substance: LEVOTHYROXINE SODIUM
     Indication: POST PROCEDURAL HYPOTHYROIDISM
     Dates: start: 1996

REACTIONS (8)
  - Panic attack [Unknown]
  - Feeling abnormal [Unknown]
  - Dental implantation [Unknown]
  - Fatigue [Unknown]
  - Blood pressure increased [Recovering/Resolving]
  - Hyperthyroidism [Unknown]
  - Breast cancer [Unknown]
  - Malaise [Unknown]

NARRATIVE: CASE EVENT DATE: 20200826
